FAERS Safety Report 21931527 (Version 2)
Quarter: 2023Q1

REPORT INFORMATION
  Report Type: Spontaneous
  Country: FR (occurrence: FR)
  Receive Date: 20230131
  Receipt Date: 20230228
  Transmission Date: 20230417
  Serious: Yes (Other)
  Sender: FDA-Public Use
  Company Number: None

PATIENT
  Age: 54 Year
  Sex: Female

DRUGS (6)
  1. OLANZAPINE [Suspect]
     Active Substance: OLANZAPINE
     Indication: Neurodevelopmental disorder
     Dosage: 10 MILLIGRAM, QD
     Route: 048
     Dates: start: 201612
  2. LAMALINE (ACETAMINOPHEN\CAFFEINE\OPIUM) [Suspect]
     Active Substance: ACETAMINOPHEN\CAFFEINE\OPIUM
     Indication: Pain
     Dosage: 3 DOSAGE FORM, QD
     Route: 048
     Dates: start: 20211022, end: 20211213
  3. BROMAZEPAM [Suspect]
     Active Substance: BROMAZEPAM
     Indication: Neurodevelopmental disorder
     Dosage: 1.5 MILLIGRAM, QD
     Route: 048
     Dates: start: 2015
  4. PIPAMPERONE [Suspect]
     Active Substance: PIPAMPERONE
     Indication: Neurodevelopmental disorder
     Dosage: 120 MILLIGRAM, QD
     Route: 048
     Dates: start: 2015, end: 20220905
  5. DEPAKOTE [Suspect]
     Active Substance: DIVALPROEX SODIUM
     Indication: Neurodevelopmental disorder
     Dosage: 1.5 GRAM, QD
     Route: 048
     Dates: start: 2015
  6. DOLIPRANE [Concomitant]
     Active Substance: ACETAMINOPHEN
     Indication: Pain
     Dosage: 1 GRAM, QD
     Route: 048
     Dates: start: 20211022, end: 20211029

REACTIONS (1)
  - Cholestasis [Recovering/Resolving]

NARRATIVE: CASE EVENT DATE: 20220208
